FAERS Safety Report 7999052-1 (Version None)
Quarter: 2011Q4

REPORT INFORMATION
  Report Type: 
  Country: None (occurrence: None)
  Receive Date: 20111221
  Receipt Date: 20111216
  Transmission Date: 20120403
  Serious: Yes (Other)
  Sender: FDA-Public Use
  Company Number: PHHY2011BR110148

PATIENT
  Age: 92 Year
  Sex: Male

DRUGS (2)
  1. ACETYLSALICYLIC ACID SRT [Concomitant]
     Dosage: 81 MG, UNK
  2. CATAFLAM [Suspect]
     Indication: ENDODONTIC PROCEDURE
     Dosage: 1 DF, PRN
     Route: 048

REACTIONS (3)
  - GASTROINTESTINAL DISORDER [None]
  - DYSPNOEA [None]
  - HYPERTENSION [None]
